FAERS Safety Report 9624594 (Version 1)
Quarter: 2013Q4

REPORT INFORMATION
  Report Type: Spontaneous
  Country: KR (occurrence: None)
  Receive Date: 20131010
  Receipt Date: 20131010
  Transmission Date: 20140711
  Serious: Yes (Life-Threatening)
  Sender: FDA-Public Use
  Company Number: 1935827

PATIENT
  Age: 30 Year
  Sex: Male

DRUGS (1)
  1. ISOPROTERENOL HYDROCHLORIDE [Suspect]
     Indication: CARDIAC ABLATION
     Route: 041

REACTIONS (1)
  - Ventricular fibrillation [None]
